FAERS Safety Report 25400004 (Version 6)
Quarter: 2025Q3

REPORT INFORMATION
  Report Type: Report from Study
  Country: CO (occurrence: CO)
  Receive Date: 20250605
  Receipt Date: 20250912
  Transmission Date: 20251020
  Serious: Yes (Other)
  Sender: TAKEDA
  Company Number: CO-TAKEDA-2025TUS051664

PATIENT
  Age: 20 Year
  Sex: Male

DRUGS (3)
  1. ADYNOVATE [Suspect]
     Active Substance: ANTIHEMOPHILIC FACTOR, HUMAN RECOMBINANT
     Indication: Factor VIII deficiency
     Dosage: 5 INTERNATIONAL UNIT, 1/WEEK
     Dates: start: 20220401
  2. ADYNOVATE [Suspect]
     Active Substance: ANTIHEMOPHILIC FACTOR, HUMAN RECOMBINANT
     Indication: Contusion
  3. ADYNOVATE [Suspect]
     Active Substance: ANTIHEMOPHILIC FACTOR, HUMAN RECOMBINANT

REACTIONS (11)
  - Haemarthrosis [Recovering/Resolving]
  - Haemorrhage [Unknown]
  - Haematoma [Unknown]
  - Repetitive strain injury [Recovering/Resolving]
  - Arthropathy [Unknown]
  - Arthralgia [Recovering/Resolving]
  - Post-traumatic neck syndrome [Unknown]
  - Electric shock sensation [Unknown]
  - Tenderness [Unknown]
  - Product dose omission issue [Unknown]
  - Hypokinesia [Unknown]

NARRATIVE: CASE EVENT DATE: 20250430
